FAERS Safety Report 16287187 (Version 2)
Quarter: 2019Q3

REPORT INFORMATION
  Report Type: Spontaneous
  Country: US (occurrence: US)
  Receive Date: 20190508
  Receipt Date: 20190920
  Transmission Date: 20191004
  Serious: No
  Sender: FDA-Public Use
  Company Number: US-TAKEDA-2019TUS026133

PATIENT
  Sex: Female

DRUGS (2)
  1. NINLARO [Suspect]
     Active Substance: IXAZOMIB CITRATE
     Dosage: 2.3 MILLIGRAM
     Route: 048
  2. NINLARO [Suspect]
     Active Substance: IXAZOMIB CITRATE
     Indication: PLASMA CELL MYELOMA
     Dosage: UNK
     Route: 048
     Dates: start: 20181124

REACTIONS (8)
  - Muscle spasms [Unknown]
  - Nausea [Unknown]
  - Nephropathy [Unknown]
  - Dysentery [Unknown]
  - Vision blurred [Unknown]
  - Back pain [Unknown]
  - Dizziness [Unknown]
  - Lung disorder [Unknown]
